FAERS Safety Report 7424641-2 (Version None)
Quarter: 2011Q2

REPORT INFORMATION
  Report Type: 
  Country: None (occurrence: None)
  Receive Date: 20110419
  Receipt Date: 20110414
  Transmission Date: 20111010
  Serious: Yes (Other)
  Sender: FDA-Public Use
  Company Number: BR-PFIZER INC-2010013456

PATIENT
  Age: 56 Year
  Sex: Female
  Weight: 80 kg

DRUGS (15)
  1. CHAMPIX [Suspect]
     Indication: TOBACCO USER
     Dosage: 0.5 MG, 1X/DAY
     Route: 048
     Dates: start: 20100121, end: 20100101
  2. ALENTHUS [Concomitant]
     Dosage: UNK
     Dates: start: 20040101
  3. CHAMPIX [Suspect]
     Dosage: ONCE DAILY
     Route: 048
     Dates: start: 20100101, end: 20100101
  4. OSTEONUTRI [Concomitant]
     Dosage: UNK
     Dates: start: 20020101
  5. CHAMPIX [Suspect]
     Dosage: 1 MG, 2X/DAY
     Route: 048
     Dates: start: 20100101
  6. VENLIFT OD [Concomitant]
     Dosage: 75 MG, UNK
     Dates: start: 20020101
  7. ARADOIS [Concomitant]
     Dosage: 50 MG, UNK
     Dates: start: 20040101
  8. CHAMPIX [Suspect]
     Dosage: 0.5 MG, 2X/DAY
     Route: 048
     Dates: start: 20100101, end: 20100101
  9. OSCAL [Concomitant]
     Indication: BONE DISORDER
     Dosage: UNK
     Dates: start: 20020101
  10. LIPLESS [Concomitant]
     Dosage: 5 MG, UNK
     Dates: start: 20050101
  11. AMLODIPINE BESILATE [Concomitant]
     Dosage: 10 MG, UNK
     Dates: start: 20040101, end: 20110413
  12. METFORMIN HYDROCHLORIDE [Concomitant]
     Dosage: UNK
     Dates: start: 20080101
  13. DIACEREIN [Concomitant]
     Dosage: UNK
  14. SIMVASTATIN [Concomitant]
     Dosage: UNK
     Dates: start: 20040101
  15. ALPRAZOLAM [Concomitant]
     Dosage: 2 MG, UNK

REACTIONS (3)
  - APATHY [None]
  - LUNG CYST [None]
  - ANXIETY [None]
